FAERS Safety Report 5191265-X (Version None)
Quarter: 2006Q4

REPORT INFORMATION
  Report Type: 
  Country: None (occurrence: None)
  Receive Date: 20061215
  Receipt Date: 20061213
  Transmission Date: 20070319
  Serious: Yes (Hospitalization)
  Sender: FDA-Public Use
  Company Number: HQWYE064114DEC06

PATIENT
  Age: 31 Year
  Sex: Male

DRUGS (2)
  1. SUPRAX [Suspect]
     Indication: TONSILLITIS
     Dosage: 400 MG 1X PER 1 DAY ORAL
     Route: 048
     Dates: start: 20061001, end: 20061001
  2. LEVOTHYROXINE SODIUM [Concomitant]

REACTIONS (2)
  - ANTIBODY TEST POSITIVE [None]
  - JAUNDICE ACHOLURIC [None]
